FAERS Safety Report 22612280 (Version 1)
Quarter: 2023Q2

REPORT INFORMATION
  Report Type: Report from Study
  Country: US (occurrence: US)
  Receive Date: 20230617
  Receipt Date: 20230617
  Transmission Date: 20230722
  Serious: No
  Sender: FDA-Public Use
  Company Number: US-002147023-NVSC2023US136713

PATIENT
  Sex: Female

DRUGS (2)
  1. CEFDINIR [Suspect]
     Active Substance: CEFDINIR
     Indication: Relapsing fever
     Dosage: UNK
     Route: 065
  2. BEE VENOM [Concomitant]
     Active Substance: APIS MELLIFERA VENOM
     Indication: Product used for unknown indication
     Dosage: UNK
     Route: 065

REACTIONS (1)
  - Hypersensitivity [Unknown]
